FAERS Safety Report 8979147 (Version 1)
Quarter: 2012Q4

REPORT INFORMATION
  Report Type: 
  Country: US (occurrence: US)
  Receive Date: 20121221
  Receipt Date: 20121221
  Transmission Date: 20130627
  Serious: Yes (Other)
  Sender: FDA-Public Use
  Company Number: US-GLAXOSMITHKLINE-A1006072A

PATIENT
  Sex: Male

DRUGS (3)
  1. CARVEDILOL [Suspect]
     Indication: HEART RATE
  2. UNKNOWN [Concomitant]
  3. LOPRESSOR [Concomitant]

REACTIONS (1)
  - Deafness [Not Recovered/Not Resolved]
